FAERS Safety Report 6356682-0 (Version None)
Quarter: 2009Q3

REPORT INFORMATION
  Report Type: 
  Country: None (occurrence: None)
  Receive Date: 20090914
  Receipt Date: 20090914
  Transmission Date: 20100115
  Serious: Yes (Hospitalization, Other)
  Sender: FDA-Public Use
  Company Number: None

PATIENT
  Age: 64 Year
  Sex: Female
  Weight: 65.7716 kg

DRUGS (1)
  1. CLINDAMYCIN [Suspect]
     Dosage: 300 MG -18TO21 1 CAP BY MOUTH EVERY 8 HRS- 7 DAYS ORAL 047
     Route: 048
     Dates: start: 20090722, end: 20090729

REACTIONS (9)
  - AGGRESSION [None]
  - BLOOD TEST ABNORMAL [None]
  - DISORIENTATION [None]
  - HAEMORRHAGE [None]
  - HYPERTENSION [None]
  - INCOHERENT [None]
  - NERVOUSNESS [None]
  - PRURITUS [None]
  - PSYCHOMOTOR HYPERACTIVITY [None]
